FAERS Safety Report 5004809-5 (Version None)
Quarter: 2006Q2

REPORT INFORMATION
  Report Type: 
  Country: None (occurrence: None)
  Receive Date: 20060517
  Receipt Date: 20060117
  Transmission Date: 20061013
  Serious: Yes (Hospitalization, Disabling, Other)
  Sender: FDA-Public Use
  Company Number: US-MERCK-0601USA02240

PATIENT
  Age: 59 Year
  Sex: Male
  Weight: 159 kg

DRUGS (19)
  1. VIOXX [Suspect]
     Indication: ARTHRITIS
     Route: 048
     Dates: start: 20020129, end: 20030528
  2. EXELON [Concomitant]
     Indication: DEMENTIA ALZHEIMER'S TYPE
     Route: 065
  3. ENALAPRIL MALEATE [Concomitant]
     Indication: HYPERTENSION
     Route: 065
     Dates: start: 20020519
  4. METOPROLOL [Concomitant]
     Indication: HYPERTENSION
     Route: 065
     Dates: start: 20020519, end: 20020703
  5. BIAXIN [Concomitant]
     Indication: BACTERIAL INFECTION
     Route: 065
  6. CLARITIN [Concomitant]
     Indication: HYPERSENSITIVITY
     Route: 065
  7. COMBIVENT [Concomitant]
     Indication: HYPERSENSITIVITY
     Route: 065
  8. ALPRAZOLAM [Concomitant]
     Indication: ANXIETY
     Route: 065
  9. TIZANIDINE HYDROCHLORIDE [Concomitant]
     Indication: PAIN
     Route: 065
     Dates: start: 20030319
  10. NEURONTIN [Concomitant]
     Indication: NEURALGIA
     Route: 065
     Dates: start: 20030523
  11. CEPHALEXIN [Concomitant]
     Indication: BACTERIAL INFECTION
     Route: 065
  12. TEMAZEPAM [Concomitant]
     Indication: INSOMNIA
     Route: 065
  13. ZITHROMAX [Concomitant]
     Indication: BACTERIAL INFECTION
     Route: 065
  14. ADVAIR DISKUS 100/50 [Concomitant]
     Indication: ASTHMA
     Route: 065
  15. DOXYCYCLINE [Concomitant]
     Indication: BACTERIAL INFECTION
     Route: 065
  16. TEQUIN [Concomitant]
     Indication: INFECTION
     Route: 065
  17. NAMENDA [Concomitant]
     Indication: DEMENTIA
     Route: 065
  18. ACETAMINOPHEN AND PROPOXYPHENE NAPSYLATE [Concomitant]
     Indication: PAIN
     Route: 065
     Dates: start: 20020130, end: 20030721
  19. ACETAMINOPHEN AND CODEINE [Concomitant]
     Indication: PAIN
     Route: 065
     Dates: start: 20030512, end: 20030518

REACTIONS (15)
  - CEREBROVASCULAR ACCIDENT [None]
  - CHRONIC OBSTRUCTIVE PULMONARY DISEASE [None]
  - CORONARY ARTERY DISEASE [None]
  - HYPERLIPIDAEMIA [None]
  - INCISION SITE COMPLICATION [None]
  - INJURY [None]
  - ISCHAEMIC CARDIOMYOPATHY [None]
  - JOINT EFFUSION [None]
  - LUNG NEOPLASM MALIGNANT [None]
  - MYOCARDIAL INFARCTION [None]
  - NEUROPATHY PERIPHERAL [None]
  - PERIPHERAL VASCULAR DISORDER [None]
  - PRESCRIBED OVERDOSE [None]
  - RENAL CYST [None]
  - THROMBOSIS [None]
